FAERS Safety Report 25612102 (Version 1)
Quarter: 2025Q3

REPORT INFORMATION
  Report Type: Spontaneous
  Country: US (occurrence: US)
  Receive Date: 20250728
  Receipt Date: 20250728
  Transmission Date: 20251020
  Serious: No
  Sender: AMGEN
  Company Number: US-AMGEN-USASP2025148238

PATIENT
  Age: 76 Year
  Sex: Female

DRUGS (10)
  1. OTEZLA [Suspect]
     Active Substance: APREMILAST
     Indication: Psoriasis
     Dosage: 30 MILLIGRAM, BID
     Route: 048
     Dates: start: 20190415
  2. OTEZLA [Suspect]
     Active Substance: APREMILAST
     Indication: Eczema
  3. Vitamin b complex/b12 [Concomitant]
  4. DULOXETINE [Concomitant]
     Active Substance: DULOXETINE
  5. ROSUVASTATIN [Concomitant]
     Active Substance: ROSUVASTATIN
  6. ZOLPIDEM [Concomitant]
     Active Substance: ZOLPIDEM TARTRATE
  7. OXYCODONE [Concomitant]
     Active Substance: OXYCODONE
  8. METHOCARBAMOL [Concomitant]
     Active Substance: METHOCARBAMOL
  9. IRBESARTAN [Concomitant]
     Active Substance: IRBESARTAN
  10. PROPRANOLOL [Concomitant]
     Active Substance: PROPRANOLOL HYDROCHLORIDE

REACTIONS (3)
  - Abdominal discomfort [Not Recovered/Not Resolved]
  - Gastrointestinal disorder [Not Recovered/Not Resolved]
  - Intentional product misuse [Not Recovered/Not Resolved]
